FAERS Safety Report 21568197 (Version 1)
Quarter: 2022Q4

REPORT INFORMATION
  Report Type: Spontaneous
  Country: US (occurrence: None)
  Receive Date: 20221107
  Receipt Date: 20221107
  Transmission Date: 20230113
  Serious: Yes (Hospitalization)
  Sender: FDA-Public Use
  Company Number: None

PATIENT
  Sex: Male

DRUGS (1)
  1. CAPECITABINE [Suspect]
     Active Substance: CAPECITABINE
     Dosage: 1000MG BID ORAL?
     Route: 048

REACTIONS (6)
  - Eating disorder [None]
  - Pain [None]
  - Anger [None]
  - Anaemia [None]
  - Loss of consciousness [None]
  - Transfusion [None]
